FAERS Safety Report 6017787-7 (Version None)
Quarter: 2008Q4

REPORT INFORMATION
  Report Type: 
  Country: None (occurrence: None)
  Receive Date: 20081223
  Receipt Date: 20081217
  Transmission Date: 20090506
  Serious: Yes (Other)
  Sender: FDA-Public Use
  Company Number: JP-ABBOTT-08P-087-0493358-00

PATIENT
  Age: 7 Year
  Sex: Male

DRUGS (4)
  1. SEVOFLURANE [Suspect]
     Indication: ANAESTHESIA
     Route: 055
  2. PENTAZOCINE LACTATE [Concomitant]
     Indication: DRUG USE FOR UNKNOWN INDICATION
  3. NITROUS OXIDE [Concomitant]
     Indication: DRUG USE FOR UNKNOWN INDICATION
  4. PROPOFOL [Concomitant]
     Indication: DRUG USE FOR UNKNOWN INDICATION

REACTIONS (2)
  - GLOSSOPTOSIS [None]
  - OXYGEN SATURATION DECREASED [None]
